FAERS Safety Report 9798600 (Version 2)
Quarter: 2014Q3

REPORT INFORMATION
  Report Type: Spontaneous
  Country: PL (occurrence: None)
  Receive Date: 20131230
  Receipt Date: 20140822
  Transmission Date: 20150326
  Serious: Yes (Life-Threatening)
  Sender: FDA-Public Use
  Company Number: 2094246

PATIENT
  Age: 60 Year
  Sex: Female
  Weight: 70 kg

DRUGS (4)
  1. OXALIPLATIN. [Suspect]
     Active Substance: OXALIPLATIN
     Indication: COLON CANCER
     Dosage: (NOT OTHERWISE SPECIFIED)
     Route: 042
     Dates: start: 20130923, end: 20130923
  2. CLEMASTINE [Concomitant]
     Active Substance: CLEMASTINE
  3. ONDANSETRON [Concomitant]
     Active Substance: ONDANSETRON
  4. HYDROCORTISONE. [Concomitant]
     Active Substance: HYDROCORTISONE

REACTIONS (12)
  - Injection site pruritus [None]
  - Oedema mouth [None]
  - Administration site pain [None]
  - Injection site oedema [None]
  - Abdominal pain upper [None]
  - Tongue oedema [None]
  - Injection site pain [None]
  - Laryngeal oedema [None]
  - Hypersensitivity [None]
  - Injection site erythema [None]
  - Injection site vesicles [None]
  - Vomiting [None]

NARRATIVE: CASE EVENT DATE: 20130923
